FAERS Safety Report 4759122-8 (Version None)
Quarter: 2005Q3

REPORT INFORMATION
  Report Type: 
  Country: None (occurrence: None)
  Receive Date: 20050901
  Receipt Date: 20050825
  Transmission Date: 20060218
  Serious: Yes (Other)
  Sender: FDA-Public Use
  Company Number: 200512427JP

PATIENT
  Sex: 0

DRUGS (2)
  1. LANTUS [Suspect]
     Route: 058
  2. HUMALOG [Suspect]

REACTIONS (1)
  - HEPATIC FUNCTION ABNORMAL [None]
